FAERS Safety Report 21749918 (Version 1)
Quarter: 2022Q4

REPORT INFORMATION
  Report Type: Spontaneous
  Country: US (occurrence: None)
  Receive Date: 20221219
  Receipt Date: 20221219
  Transmission Date: 20230113
  Serious: Yes (Disabling)
  Sender: FDA-Public Use
  Company Number: None

PATIENT
  Age: 27 Year
  Sex: Male
  Weight: 77 kg

DRUGS (1)
  1. PROPECIA [Suspect]
     Active Substance: FINASTERIDE
     Indication: Androgenetic alopecia
     Dosage: OTHER QUANTITY : 1 CAPSULE(S);?FREQUENCY : DAILY;?
     Route: 048
     Dates: start: 20211001, end: 20220801

REACTIONS (52)
  - Insomnia [None]
  - Loss of libido [None]
  - Erectile dysfunction [None]
  - Organic erectile dysfunction [None]
  - Ejaculation failure [None]
  - Ejaculation disorder [None]
  - Anorgasmia [None]
  - Male orgasmic disorder [None]
  - Sperm concentration decreased [None]
  - Emotional disorder [None]
  - Disturbance in attention [None]
  - Confusional state [None]
  - Amnesia [None]
  - Aphasia [None]
  - Thinking abnormal [None]
  - Dysarthria [None]
  - Apathy [None]
  - Dependent personality disorder [None]
  - Anxiety [None]
  - Panic attack [None]
  - Major depression [None]
  - Suicidal ideation [None]
  - Penile size reduced [None]
  - Penile curvature [None]
  - Testicular pain [None]
  - Testicular disorder [None]
  - Penis disorder [None]
  - Genital hypoaesthesia [None]
  - Weight increased [None]
  - Gynaecomastia [None]
  - Muscular weakness [None]
  - Muscle atrophy [None]
  - Arthralgia [None]
  - Dark circles under eyes [None]
  - Prostatic pain [None]
  - Fatigue [None]
  - Abdominal pain upper [None]
  - Constipation [None]
  - Visual acuity reduced [None]
  - Vision blurred [None]
  - Tinnitus [None]
  - Deafness [None]
  - Alopecia [None]
  - Pollakiuria [None]
  - Body temperature decreased [None]
  - Restlessness [None]
  - Chest discomfort [None]
  - Heart rate increased [None]
  - Dyspepsia [None]
  - Diarrhoea [None]
  - Faeces discoloured [None]
  - Illness [None]

NARRATIVE: CASE EVENT DATE: 20220814
